FAERS Safety Report 24598569 (Version 2)
Quarter: 2024Q4

REPORT INFORMATION
  Report Type: Spontaneous
  Country: US (occurrence: US)
  Receive Date: 20241110
  Receipt Date: 20241124
  Transmission Date: 20250114
  Serious: No
  Sender: SANOFI AVENTIS
  Company Number: US-SA-2024SA307495

PATIENT
  Age: 60 Year
  Sex: Male

DRUGS (4)
  1. DUPIXENT [Suspect]
     Active Substance: DUPILUMAB
     Indication: Sinus polyp
     Dosage: 300 MG, QOW
     Route: 058
  2. MONTELUKAST [Concomitant]
     Active Substance: MONTELUKAST
     Indication: Nasal congestion
  3. TRELEGY ELLIPTA [Concomitant]
     Active Substance: FLUTICASONE FUROATE\UMECLIDINIUM BROMIDE\VILANTEROL TRIFENATATE
  4. BELSOMRA [Concomitant]
     Active Substance: SUVOREXANT

REACTIONS (5)
  - Increased viscosity of upper respiratory secretion [Unknown]
  - Peripheral swelling [Unknown]
  - Fatigue [Unknown]
  - Sleep disorder due to a general medical condition [Unknown]
  - Restless legs syndrome [Unknown]

NARRATIVE: CASE EVENT DATE: 20240101
